FAERS Safety Report 24853161 (Version 3)
Quarter: 2025Q1

REPORT INFORMATION
  Report Type: Spontaneous
  Country: US (occurrence: None)
  Receive Date: 20250117
  Receipt Date: 20250320
  Transmission Date: 20250408
  Serious: No
  Sender: AXSOME THERAPEUTICS, INC.
  Company Number: US-Axsome Therapeutics, Inc.-AXS202501-000017

PATIENT
  Age: 19 Year
  Sex: Female

DRUGS (2)
  1. AUVELITY [Suspect]
     Active Substance: BUPROPION HYDROCHLORIDE\DEXTROMETHORPHAN HYDROBROMIDE
     Indication: Major depression
     Route: 065
     Dates: start: 20241204, end: 20241205
  2. KETAMINE [Concomitant]
     Active Substance: KETAMINE
     Indication: Affective disorder
     Route: 065

REACTIONS (4)
  - Joint injury [Recovering/Resolving]
  - Fall [Recovered/Resolved]
  - Agitation [Recovered/Resolved]
  - Anxiety [Not Recovered/Not Resolved]

NARRATIVE: CASE EVENT DATE: 20241204
